FAERS Safety Report 10463450 (Version 1)
Quarter: 2014Q3

REPORT INFORMATION
  Report Type: Spontaneous
  Country: US (occurrence: None)
  Receive Date: 20140918
  Receipt Date: 20140918
  Transmission Date: 20150326
  Serious: No
  Sender: FDA-Public Use
  Company Number: None

PATIENT
  Age: 81 Year
  Sex: Male

DRUGS (6)
  1. HYDROXYUREA. [Concomitant]
     Active Substance: HYDROXYUREA
  2. WARFARIN [Concomitant]
     Active Substance: WARFARIN
  3. LOSARTAN [Concomitant]
     Active Substance: LOSARTAN
  4. ERIVEDGE [Suspect]
     Active Substance: VISMODEGIB
     Indication: SKIN CANCER
     Dosage: ONE CAPSULE  QD  ORAL
     Route: 048
     Dates: start: 20140714, end: 20140917
  5. SOTALOL. [Concomitant]
     Active Substance: SOTALOL
  6. LASIX [Concomitant]
     Active Substance: FUROSEMIDE

REACTIONS (3)
  - Cough [None]
  - Constipation [None]
  - Ageusia [None]

NARRATIVE: CASE EVENT DATE: 20140917
